FAERS Safety Report 5956182-3 (Version None)
Quarter: 2008Q4

REPORT INFORMATION
  Report Type: 
  Country: None (occurrence: None)
  Receive Date: 20081112
  Receipt Date: 20081029
  Transmission Date: 20090506
  Serious: Yes (Life-Threatening, Hospitalization)
  Sender: FDA-Public Use
  Company Number: MCY20080001

PATIENT
  Age: 18 Year
  Sex: Female

DRUGS (2)
  1. MINOCYCLINE HYDROCHLORIDE [Suspect]
     Indication: ACNE
  2. SERTRALINE [Concomitant]

REACTIONS (5)
  - BODY TEMPERATURE DECREASED [None]
  - CHEST DISCOMFORT [None]
  - LACTIC ACIDOSIS [None]
  - MITOCHONDRIAL MYOPATHY [None]
  - PINEAL GLAND CYST [None]
